FAERS Safety Report 4401681-9 (Version None)
Quarter: 2004Q3

REPORT INFORMATION
  Report Type: 
  Country: None (occurrence: None)
  Receive Date: 20040719
  Receipt Date: 20040615
  Transmission Date: 20050211
  Serious: Yes (Life-Threatening, Hospitalization)
  Sender: FDA-Public Use
  Company Number: FR-GLAXOSMITHKLINE-B0335855A

PATIENT
  Age: 64 Year
  Sex: Female

DRUGS (7)
  1. AVANDIA [Suspect]
     Dosage: 4MG PER DAY
     Route: 048
     Dates: start: 20040324, end: 20040101
  2. DIAMICRON [Concomitant]
     Dosage: 30MG TWICE PER DAY
     Route: 048
  3. ACUILIX [Concomitant]
     Dosage: 1UNIT PER DAY
     Route: 048
  4. ASPIRIN [Concomitant]
     Dosage: 75MG PER DAY
     Route: 048
  5. ATENOLOL [Concomitant]
     Dosage: 100MG PER DAY
     Route: 048
  6. ACETAMINOPHEN [Concomitant]
     Route: 048
  7. FORLAX [Concomitant]
     Dosage: 2UNIT PER DAY
     Route: 048

REACTIONS (9)
  - AORTIC VALVE INCOMPETENCE [None]
  - ASTHENIA [None]
  - ATRIAL FIBRILLATION [None]
  - CARDIAC FAILURE [None]
  - DILATATION ATRIAL [None]
  - DYSPNOEA [None]
  - FLUID RETENTION [None]
  - MITRAL VALVE INCOMPETENCE [None]
  - TACHYARRHYTHMIA [None]
